FAERS Safety Report 7327144-9 (Version None)
Quarter: 2011Q1

REPORT INFORMATION
  Report Type: 
  Country: None (occurrence: None)
  Receive Date: 20110302
  Receipt Date: 20110225
  Transmission Date: 20110831
  Serious: Yes (Other)
  Sender: FDA-Public Use
  Company Number: US-PFIZER INC-2011041932

PATIENT
  Sex: Male
  Weight: 62.585 kg

DRUGS (2)
  1. VIAGRA [Suspect]
     Indication: ERECTILE DYSFUNCTION
     Dosage: 100 MG, AS NEEDED
     Route: 048
     Dates: start: 20110224
  2. NAPROXEN [Concomitant]
     Dosage: UNK

REACTIONS (5)
  - PENILE PAIN [None]
  - PENILE HAEMORRHAGE [None]
  - INCORRECT DOSE ADMINISTERED [None]
  - PENIS DISORDER [None]
  - TESTICULAR PAIN [None]
